FAERS Safety Report 15143358 (Version 1)
Quarter: 2018Q3

REPORT INFORMATION
  Report Type: Spontaneous
  Country: US (occurrence: US)
  Receive Date: 20180713
  Receipt Date: 20180713
  Transmission Date: 20181010
  Serious: Yes (Other)
  Sender: FDA-Public Use
  Company Number: US-AUROBINDO-AUR-APL-2018-034109

PATIENT
  Age: 52 Year
  Sex: Female

DRUGS (12)
  1. LINEZOLID. [Suspect]
     Active Substance: LINEZOLID
     Indication: ENTEROBACTER INFECTION
  2. MEROPENEM. [Concomitant]
     Active Substance: MEROPENEM
     Indication: ENTEROBACTER INFECTION
     Dosage: 1 GRAM, Q8H
     Route: 042
  3. LINEZOLID. [Suspect]
     Active Substance: LINEZOLID
     Indication: ENTEROBACTER INFECTION
  4. LINEZOLID. [Suspect]
     Active Substance: LINEZOLID
     Indication: ENTEROCOCCAL INFECTION
  5. ERTAPENEM. [Concomitant]
     Active Substance: ERTAPENEM SODIUM
     Indication: ENTEROCOCCAL INFECTION
     Dosage: 1 GRAM, Q12H
     Route: 042
  6. ERTAPENEM. [Concomitant]
     Active Substance: ERTAPENEM SODIUM
     Indication: ENTEROBACTER INFECTION
  7. LINEZOLID. [Suspect]
     Active Substance: LINEZOLID
     Indication: ESCHERICHIA INFECTION
     Dosage: 600 MILLIGRAM, Q12H
     Route: 042
  8. LINEZOLID. [Suspect]
     Active Substance: LINEZOLID
     Indication: ENTEROCOCCAL INFECTION
  9. MEROPENEM. [Concomitant]
     Active Substance: MEROPENEM
     Indication: ENTEROCOCCAL INFECTION
  10. ERTAPENEM. [Concomitant]
     Active Substance: ERTAPENEM SODIUM
     Indication: ESCHERICHIA INFECTION
  11. MEROPENEM. [Concomitant]
     Active Substance: MEROPENEM
     Indication: ESCHERICHIA INFECTION
  12. LINEZOLID. [Suspect]
     Active Substance: LINEZOLID
     Indication: ESCHERICHIA INFECTION
     Dosage: UNK, PLANNED COURSE OF 8 WEEKS
     Route: 048

REACTIONS (4)
  - Pancreatitis [Unknown]
  - Hypoglycaemia [Recovered/Resolved]
  - Toxicity to various agents [Unknown]
  - Metabolic acidosis [Recovering/Resolving]
